FAERS Safety Report 20310936 (Version 2)
Quarter: 2022Q1

REPORT INFORMATION
  Report Type: Spontaneous
  Country: US (occurrence: US)
  Receive Date: 20220107
  Receipt Date: 20220214
  Transmission Date: 20220423
  Serious: Yes (Other)
  Sender: FDA-Public Use
  Company Number: US-PFIZER INC-202101379274

PATIENT
  Age: 50 Year
  Sex: Male

DRUGS (3)
  1. TOFACITINIB CITRATE [Suspect]
     Active Substance: TOFACITINIB CITRATE
     Indication: Crohn^s disease
     Dosage: 5 MG, 2X/DAY
     Dates: start: 2016
  2. METHOTREXATE SODIUM [Suspect]
     Active Substance: METHOTREXATE SODIUM
     Indication: Crohn^s disease
     Dosage: UNK
     Dates: start: 2015
  3. INFLIXIMAB [Suspect]
     Active Substance: INFLIXIMAB
     Indication: Crohn^s disease
     Dosage: UNK
     Dates: start: 2015

REACTIONS (2)
  - Meningitis bacterial [Unknown]
  - Pneumonia legionella [Unknown]

NARRATIVE: CASE EVENT DATE: 20181101
